FAERS Safety Report 6647248-3 (Version None)
Quarter: 2010Q1

REPORT INFORMATION
  Report Type: 
  Country: None (occurrence: None)
  Receive Date: 20100323
  Receipt Date: 20100316
  Transmission Date: 20100710
  Serious: Yes (Other)
  Sender: FDA-Public Use
  Company Number: A0850471A

PATIENT
  Age: 32 Year
  Sex: Female

DRUGS (2)
  1. LAMICTAL CD [Suspect]
     Indication: EPILEPSY
     Dosage: 200MG TWICE PER DAY
     Route: 048
     Dates: start: 20040101
  2. NO CONCURRENT MEDICATIONS [Concomitant]

REACTIONS (4)
  - BALANCE DISORDER [None]
  - CONVULSION [None]
  - DIZZINESS [None]
  - DRUG EXPOSURE DURING PREGNANCY [None]
